FAERS Safety Report 8333722-0 (Version None)
Quarter: 2012Q1

REPORT INFORMATION
  Report Type: 
  Country: None (occurrence: None)
  Receive Date: 20120328
  Receipt Date: 20110308
  Transmission Date: 20120608
  Serious: Yes (Other)
  Sender: FDA-Public Use
  Company Number: PHHY2011US21528

PATIENT
  Sex: Male

DRUGS (12)
  1. CELEBREX [Concomitant]
  2. PROGRAF [Concomitant]
  3. COREG [Concomitant]
  4. LOTENSIN [Concomitant]
  5. BOTOX (BOTULINUM TOXIN TYPE A) [Concomitant]
  6. ZORTRESS [Suspect]
     Indication: HEART TRANSPLANT
     Dosage: 0.75 MG, BID 0.5 MG, BID
  7. CELLCEPT [Suspect]
     Indication: HEART TRANSPLANT
  8. ZOVIRAX [Concomitant]
  9. AMARYL [Concomitant]
  10. LIPITOR [Concomitant]
  11. MICROCILLIN (CARBENICILLIN DISODIUM) [Concomitant]
  12. PROZAC [Concomitant]

REACTIONS (4)
  - PLATELET COUNT DECREASED [None]
  - NEOPLASM MALIGNANT [None]
  - HAEMORRHAGE [None]
  - COAGULATION TIME PROLONGED [None]
